FAERS Safety Report 4673406-3 (Version None)
Quarter: 2005Q2

REPORT INFORMATION
  Report Type: 
  Country: None (occurrence: None)
  Receive Date: 20050523
  Receipt Date: 20050512
  Transmission Date: 20051028
  Serious: Yes (Hospitalization)
  Sender: FDA-Public Use
  Company Number: 2003-12-0659

PATIENT
  Age: 48 Year
  Sex: Male
  Weight: 63 kg

DRUGS (2)
  1. REBETOL [Suspect]
     Indication: HEPATITIS C
     Dosage: 800 MG ORAL
     Route: 048
     Dates: start: 20020822, end: 20020831
  2. INTRON A [Suspect]
     Indication: HEPATITIS C
     Dosage: 6 MIU QD INTRAMUSCULAR
     Route: 030
     Dates: start: 20020822, end: 20020831

REACTIONS (12)
  - APATHY [None]
  - CONDITION AGGRAVATED [None]
  - CSF PRESSURE DECREASED [None]
  - FEELING ABNORMAL [None]
  - HEADACHE [None]
  - INSOMNIA [None]
  - NAUSEA [None]
  - ORAL INTAKE REDUCED [None]
  - PARAESTHESIA [None]
  - PYREXIA [None]
  - TONGUE DISORDER [None]
  - VOMITING [None]
